FAERS Safety Report 11545632 (Version 1)
Quarter: 2015Q3

REPORT INFORMATION
  Report Type: Spontaneous
  Country: IT (occurrence: IT)
  Receive Date: 20150924
  Receipt Date: 20150924
  Transmission Date: 20151125
  Serious: Yes (Other)
  Sender: FDA-Public Use
  Company Number: IT-PFIZER INC-2015308271

PATIENT
  Age: 37 Year
  Sex: Female

DRUGS (3)
  1. PEPTAZOL [Suspect]
     Active Substance: PANTOPRAZOLE SODIUM
     Dosage: 40 MG, DAILY
     Dates: start: 20150801
  2. CEFTRIAXONE MYLAN GENERICS [Suspect]
     Active Substance: CEFTRIAXONE
     Dosage: 2 G, DAILY
     Route: 042
     Dates: start: 20150730
  3. DEXAMETHASONE PHOSPHATE HOSPIRA [Suspect]
     Active Substance: DEXAMETHASONE PHOSPHATE
     Dosage: 4 MG, DAILY
     Route: 042
     Dates: start: 20150730

REACTIONS (2)
  - Pancreatitis [Recovered/Resolved]
  - Hypertransaminasaemia [Recovered/Resolved]

NARRATIVE: CASE EVENT DATE: 20150807
